FAERS Safety Report 7239241-7 (Version None)
Quarter: 2011Q1

REPORT INFORMATION
  Report Type: 
  Country: None (occurrence: None)
  Receive Date: 20110119
  Receipt Date: 20110119
  Transmission Date: 20110831
  Serious: Yes (Hospitalization, Other)
  Sender: FDA-Public Use
  Company Number: None

PATIENT
  Age: 42 Year
  Sex: Male
  Weight: 95.2554 kg

DRUGS (2)
  1. PREDNISONE AND OTHER STEROIDS ?  ? [Suspect]
     Indication: SINUSITIS
     Dates: start: 19990101, end: 20000630
  2. PAIN MEDICATIONS [Concomitant]

REACTIONS (6)
  - MEDICAL DEVICE COMPLICATION [None]
  - NO THERAPEUTIC RESPONSE [None]
  - OSTEONECROSIS [None]
  - PAIN IN EXTREMITY [None]
  - PROCEDURAL PAIN [None]
  - ARTHRALGIA [None]
